FAERS Safety Report 15293419 (Version 1)
Quarter: 2018Q3

REPORT INFORMATION
  Report Type: Spontaneous
  Country: US (occurrence: US)
  Receive Date: 20180820
  Receipt Date: 20180820
  Transmission Date: 20181010
  Serious: No
  Sender: FDA-Public Use
  Company Number: US-009507513-1808USA000214

PATIENT
  Age: 44 Year
  Sex: Male

DRUGS (1)
  1. PROVENTIL [Suspect]
     Active Substance: ALBUTEROL
     Indication: ASTHMA
     Dosage: 2 PUFFS EVERY 4 HOURS AS NEEDED
     Route: 055

REACTIONS (6)
  - Dyspnoea [Unknown]
  - Product container issue [Unknown]
  - Product quality issue [Unknown]
  - Expired product administered [Unknown]
  - Drug dose omission [Unknown]
  - Product lot number issue [Unknown]

NARRATIVE: CASE EVENT DATE: 201807
